FAERS Safety Report 12875719 (Version 1)
Quarter: 2016Q4

REPORT INFORMATION
  Report Type: Spontaneous
  Country: US (occurrence: US)
  Receive Date: 20161020
  Receipt Date: 20161020
  Transmission Date: 20170207
  Serious: Yes (Hospitalization)
  Sender: FDA-Public Use
  Company Number: None

PATIENT
  Age: 82 Year
  Sex: Female

DRUGS (1)
  1. COTELLIC [Suspect]
     Active Substance: COBIMETINIB
     Indication: MALIGNANT MELANOMA
     Dosage: 60MG (3 X 20MG TABS) ONCE DAILY FOR 21 DAYS, 7 ORAL
     Route: 048
     Dates: start: 20160503, end: 20160616

REACTIONS (2)
  - Rectal haemorrhage [None]
  - Hospitalisation [None]

NARRATIVE: CASE EVENT DATE: 201605
